FAERS Safety Report 19181489 (Version 5)
Quarter: 2022Q1

REPORT INFORMATION
  Report Type: Spontaneous
  Country: CA (occurrence: CA)
  Receive Date: 20210426
  Receipt Date: 20220226
  Transmission Date: 20220423
  Serious: Yes (Hospitalization, Other)
  Sender: FDA-Public Use
  Company Number: NVSC2021CA090279

PATIENT
  Age: 78 Year
  Sex: Male

DRUGS (48)
  1. BISOPROLOL FUMARATE [Suspect]
     Active Substance: BISOPROLOL FUMARATE
     Indication: Product used for unknown indication
     Dosage: UNK
     Route: 065
  2. BISOPROLOL FUMARATE [Suspect]
     Active Substance: BISOPROLOL FUMARATE
     Dosage: UNK
     Route: 065
  3. CALCIUM GLUCONATE [Suspect]
     Active Substance: CALCIUM GLUCONATE
     Indication: Product used for unknown indication
     Dosage: UNK
     Route: 065
  4. CALCIUM GLUCONATE [Suspect]
     Active Substance: CALCIUM GLUCONATE
     Dosage: UNK
     Route: 065
  5. ESOMEPRAZOLE MAGNESIUM [Suspect]
     Active Substance: ESOMEPRAZOLE MAGNESIUM
     Indication: Product used for unknown indication
     Dosage: 40 MG, QD
     Route: 048
  6. ESOMEPRAZOLE MAGNESIUM [Suspect]
     Active Substance: ESOMEPRAZOLE MAGNESIUM
     Dosage: 40 MG, QD
     Route: 048
  7. METHOTREXATE [Suspect]
     Active Substance: METHOTREXATE
     Indication: Product used for unknown indication
     Dosage: UNK, QW (1 EVERY 1 WEEKS)
     Route: 042
  8. METHOTREXATE [Suspect]
     Active Substance: METHOTREXATE
     Dosage: 15 MG, QW (1 EVERY 1 WEEKS)
     Route: 042
  9. METHOTREXATE [Suspect]
     Active Substance: METHOTREXATE
     Dosage: 20 MG, QW (1 EVERY 1 WEEKS) THERAPY DURATION 1460.0 DAYS
     Route: 042
  10. METHOTREXATE [Suspect]
     Active Substance: METHOTREXATE
     Dosage: 25 MG, QW (1 EVERY 1 WEEKS)
     Route: 042
  11. METHOTREXATE [Suspect]
     Active Substance: METHOTREXATE
     Dosage: 17.5 MG, QW (1 EVERY 1 WEEKS), THETAPY DURATION 1460.0 DAYS
     Route: 042
  12. METHOTREXATE [Suspect]
     Active Substance: METHOTREXATE
     Dosage: UNK(1 EVERY 1 WEEKS)
     Route: 042
  13. METHOTREXATE [Suspect]
     Active Substance: METHOTREXATE
     Dosage: UNK, QW (1 EVERY 1 WEEKS)
     Route: 042
  14. METHOTREXATE [Suspect]
     Active Substance: METHOTREXATE
     Dosage: UNK
     Route: 042
  15. METHOTREXATE [Suspect]
     Active Substance: METHOTREXATE
     Dosage: UNK
     Route: 042
  16. METHOTREXATE [Suspect]
     Active Substance: METHOTREXATE
     Dosage: UNK
     Route: 042
  17. METHOTREXATE [Suspect]
     Active Substance: METHOTREXATE
     Dosage: 25 MG, QW (1 EVERY 1 WEEK)
     Route: 065
  18. LEUCOVORIN CALCIUM [Suspect]
     Active Substance: LEUCOVORIN CALCIUM
     Indication: Product used for unknown indication
     Dosage: 5 MG (2 EVERY 1 WEEK)
     Route: 065
  19. LEUCOVORIN CALCIUM [Suspect]
     Active Substance: LEUCOVORIN CALCIUM
     Dosage: 5 MG, QW (2 EVERY 1 WEEK)
     Route: 065
  20. PANTOPRAZOLE [Suspect]
     Active Substance: PANTOPRAZOLE
     Indication: Product used for unknown indication
     Dosage: UNK
     Route: 065
  21. PANTOPRAZOLE [Suspect]
     Active Substance: PANTOPRAZOLE
     Dosage: UNK
     Route: 065
  22. VITAMIN B [Suspect]
     Active Substance: VITAMIN B
     Indication: Product used for unknown indication
     Dosage: UNK
     Route: 065
  23. VITAMIN D3 [Suspect]
     Active Substance: CHOLECALCIFEROL
     Indication: Product used for unknown indication
     Dosage: UNK
     Route: 065
  24. VITAMIN D3 [Suspect]
     Active Substance: CHOLECALCIFEROL
     Dosage: 100 MG, QD, (1 EVERY 1 DAYS)
     Route: 065
  25. VITAMIN D3 [Suspect]
     Active Substance: CHOLECALCIFEROL
     Dosage: 1 DOSAGE FORM, QW (1 EVERY 1 WEEKS)
     Route: 065
  26. PREDNISONE [Suspect]
     Active Substance: PREDNISONE
     Indication: Product used for unknown indication
     Dosage: UNK
     Route: 065
  27. PREDNISONE [Suspect]
     Active Substance: PREDNISONE
     Dosage: UNK
     Route: 065
  28. PREDNISONE [Suspect]
     Active Substance: PREDNISONE
     Dosage: UNK
     Route: 065
  29. PREDNISONE [Suspect]
     Active Substance: PREDNISONE
     Dosage: UNK
     Route: 065
  30. PARA-AMINOSALICYLIC ACID [Suspect]
     Active Substance: AMINOSALICYLIC ACID
     Indication: Product used for unknown indication
     Dosage: UNK
     Route: 065
  31. PARA-AMINOSALICYLIC ACID [Suspect]
     Active Substance: AMINOSALICYLIC ACID
     Dosage: UNK
     Route: 065
  32. PARA-AMINOSALICYLIC ACID [Suspect]
     Active Substance: AMINOSALICYLIC ACID
     Dosage: UNK
     Route: 065
  33. RIFAMPIN [Suspect]
     Active Substance: RIFAMPIN
     Indication: Product used for unknown indication
     Dosage: UNK
     Route: 065
  34. RIFAMPIN [Suspect]
     Active Substance: RIFAMPIN
     Dosage: UNK
     Route: 065
  35. SILDENAFIL CITRATE [Suspect]
     Active Substance: SILDENAFIL CITRATE
     Indication: Product used for unknown indication
     Dosage: 100 MG
     Route: 065
  36. SILDENAFIL CITRATE [Suspect]
     Active Substance: SILDENAFIL CITRATE
     Dosage: 100 MG
     Route: 065
  37. MESALAMINE [Suspect]
     Active Substance: MESALAMINE
     Indication: Product used for unknown indication
     Dosage: 1200 MG, QD (1 EVERY 1 DAYS)
     Route: 065
  38. MESALAMINE [Suspect]
     Active Substance: MESALAMINE
     Dosage: 1200 MG, QD (1 EVERY 1 DAYS)
     Route: 048
  39. ISONIAZID [Suspect]
     Active Substance: ISONIAZID
     Indication: Product used for unknown indication
     Dosage: UNK
     Route: 065
  40. IBUPROFEN [Suspect]
     Active Substance: IBUPROFEN
     Indication: Product used for unknown indication
     Dosage: UNK
     Route: 065
  41. IBUPROFEN [Suspect]
     Active Substance: IBUPROFEN
     Dosage: UNK
     Route: 065
  42. HUMIRA [Suspect]
     Active Substance: ADALIMUMAB
     Indication: Product used for unknown indication
     Dosage: UNK
     Route: 058
  43. HUMIRA [Suspect]
     Active Substance: ADALIMUMAB
     Dosage: UNK, (SOLUTION)
     Route: 058
  44. HUMIRA [Suspect]
     Active Substance: ADALIMUMAB
     Dosage: UNK
     Route: 058
  45. IRON [Suspect]
     Active Substance: IRON
     Indication: Product used for unknown indication
     Dosage: UNK
     Route: 065
  46. IRON [Suspect]
     Active Substance: IRON
     Dosage: UNK
     Route: 065
  47. VITAMIN B1 [Suspect]
     Active Substance: THIAMINE HYDROCHLORIDE
     Indication: Product used for unknown indication
     Dosage: 100 MG, QD (1 EVERY 1 DAYS)
     Route: 065
  48. VITAMIN B1 [Suspect]
     Active Substance: THIAMINE HYDROCHLORIDE
     Dosage: 100 MG, QD (1 EVERY 1 DAYS)
     Route: 065

REACTIONS (7)
  - Osteoporosis [Recovered/Resolved]
  - Diabetes mellitus [Recovered/Resolved]
  - Colitis ulcerative [Recovered/Resolved]
  - Dyslipidaemia [Recovered/Resolved]
  - Drug intolerance [Recovered/Resolved]
  - Drug hypersensitivity [Recovered/Resolved]
  - Drug ineffective [Recovered/Resolved]
